FAERS Safety Report 20369813 (Version 1)
Quarter: 2022Q1

REPORT INFORMATION
  Report Type: Spontaneous
  Country: FR (occurrence: FR)
  Receive Date: 20220124
  Receipt Date: 20220124
  Transmission Date: 20220423
  Serious: No
  Sender: FDA-Public Use
  Company Number: FR-LUPIN PHARMACEUTICALS INC.-2022-00965

PATIENT

DRUGS (1)
  1. CLOBETASOL PROPIONATE [Suspect]
     Active Substance: CLOBETASOL PROPIONATE
     Indication: Drug reaction with eosinophilia and systemic symptoms
     Dosage: 30 GRAM, QD, TOPICAL STEROIDS (TS, CLOBETASOL PROPIONATE 0.05%)
     Route: 061

REACTIONS (1)
  - Off label use [Unknown]
